FAERS Safety Report 5803932-2 (Version None)
Quarter: 2008Q3

REPORT INFORMATION
  Report Type: 
  Country: None (occurrence: None)
  Receive Date: 20080708
  Receipt Date: 20080626
  Transmission Date: 20090109
  Serious: Yes (Hospitalization, Other)
  Sender: FDA-Public Use
  Company Number: US-PFIZER INC-2008054292

PATIENT
  Sex: Female

DRUGS (3)
  1. LYRICA [Suspect]
     Indication: CONVULSION
     Route: 048
     Dates: start: 20060901, end: 20070101
  2. LAMICTAL [Suspect]
     Indication: CONVULSION
     Route: 048
     Dates: start: 20050101
  3. TOPAMAX [Suspect]
     Indication: CONVULSION
     Route: 048

REACTIONS (14)
  - ABNORMAL BEHAVIOUR [None]
  - AGGRESSION [None]
  - ALLERGY TO CHEMICALS [None]
  - CONTUSION [None]
  - CONVULSION [None]
  - DISTURBANCE IN ATTENTION [None]
  - FALL [None]
  - HEAD INJURY [None]
  - LOCAL SWELLING [None]
  - MEMORY IMPAIRMENT [None]
  - PERIORBITAL HAEMATOMA [None]
  - PHARMACEUTICAL PRODUCT COMPLAINT [None]
  - WEIGHT DECREASED [None]
  - WEIGHT INCREASED [None]
